FAERS Safety Report 8577700-5 (Version None)
Quarter: 2012Q3

REPORT INFORMATION
  Report Type: 
  Country: None (occurrence: None)
  Receive Date: 20120808
  Receipt Date: 20120730
  Transmission Date: 20120928
  Serious: Yes (Other)
  Sender: FDA-Public Use
  Company Number: NL-AMGEN-NLDSP2012048991

PATIENT
  Age: 61 Year
  Sex: Female

DRUGS (4)
  1. FOLIC ACID [Concomitant]
     Dosage: UNK
  2. ENBREL [Suspect]
     Indication: RHEUMATOID ARTHRITIS
     Dosage: 50 MG, WEEKLY
     Dates: start: 20100223
  3. METHOTREXATE [Concomitant]
     Dosage: UNK
  4. MORPHIN                            /00036302/ [Concomitant]
     Dosage: UNK

REACTIONS (2)
  - MUSCULOSKELETAL DISORDER [None]
  - ALOPECIA [None]
